FAERS Safety Report 25817487 (Version 1)
Quarter: 2025Q3

REPORT INFORMATION
  Report Type: Spontaneous
  Country: TR (occurrence: TR)
  Receive Date: 20250918
  Receipt Date: 20250918
  Transmission Date: 20251021
  Serious: Yes (Hospitalization, Other)
  Sender: GILEAD
  Company Number: TR-GILEAD-2025-0728129

PATIENT
  Age: 68 Year
  Sex: Female

DRUGS (1)
  1. TRODELVY [Suspect]
     Active Substance: SACITUZUMAB GOVITECAN-HZIY
     Indication: Triple negative breast cancer
     Route: 065
     Dates: start: 202006, end: 20250228

REACTIONS (4)
  - Glomerular filtration rate decreased [Unknown]
  - Diarrhoea [Recovered/Resolved]
  - Disease progression [Unknown]
  - Therapy partial responder [Unknown]
